FAERS Safety Report 14306821 (Version 1)
Quarter: 2017Q4

REPORT INFORMATION
  Report Type: Spontaneous
  Country: US (occurrence: US)
  Receive Date: 20171220
  Receipt Date: 20171220
  Transmission Date: 20180321
  Serious: Yes (Other)
  Sender: FDA-Public Use
  Company Number: US-ZYDUS-018340

PATIENT
  Age: 69 Year
  Sex: Female

DRUGS (1)
  1. MESALAZINE [Suspect]
     Active Substance: MESALAMINE
     Indication: COLITIS ULCERATIVE
     Route: 065

REACTIONS (8)
  - Dyspnoea exertional [Recovering/Resolving]
  - Cough [Recovering/Resolving]
  - Restrictive pulmonary disease [Recovering/Resolving]
  - Acute lung injury [Recovering/Resolving]
  - Organising pneumonia [Recovering/Resolving]
  - Lymphadenopathy mediastinal [Recovering/Resolving]
  - Pulmonary mass [Recovering/Resolving]
  - Hilar lymphadenopathy [Recovering/Resolving]
